FAERS Safety Report 5905027-6 (Version None)
Quarter: 2008Q3

REPORT INFORMATION
  Report Type: 
  Country: None (occurrence: None)
  Receive Date: 20080909
  Receipt Date: 20080416
  Transmission Date: 20090109
  Serious: Yes (Other)
  Sender: FDA-Public Use
  Company Number: 163-20785-08041271

PATIENT
  Age: 49 Year
  Sex: Female

DRUGS (1)
  1. THALOMID [Suspect]
     Indication: MULTIPLE MYELOMA
     Dosage: 100-50MG, DAILY, ORAL
     Route: 048
     Dates: start: 20080222

REACTIONS (4)
  - CELLULITIS [None]
  - FALL [None]
  - NEUROPATHY PERIPHERAL [None]
  - THROMBOSIS [None]
